FAERS Safety Report 4337952-4 (Version None)
Quarter: 2004Q2

REPORT INFORMATION
  Report Type: 
  Country: None (occurrence: None)
  Receive Date: 20040407
  Receipt Date: 20040323
  Transmission Date: 20050107
  Serious: Yes (Death, Life-Threatening, Hospitalization)
  Sender: FDA-Public Use
  Company Number: JP-JNJFOC-20040301708

PATIENT
  Age: 67 Year
  Sex: Male
  Weight: 55 kg

DRUGS (21)
  1. REMICADE [Suspect]
     Dosage: 3 MG/KG, 1 IN 1 AS NECESSARY, INTRAVENOUS DRIP
     Route: 041
     Dates: start: 20031204, end: 20031204
  2. REMICADE [Suspect]
     Dosage: 3 MG/KG, 1 IN 1 AS NECESSARY, INTRAVENOUS DRIP
     Route: 041
     Dates: start: 20031218, end: 20031218
  3. REMICADE [Suspect]
     Dosage: 3 MG/KG, 1 IN 1 AS NECESSARY, INTRAVENOUS DRIP
     Route: 041
     Dates: start: 20040114, end: 20040114
  4. RHEUMATREX [Suspect]
     Indication: RHEUMATOID ARTHRITIS
     Dosage: 2.5 MG, IN 1 WEEK, ORAL; SEE IMAGE
     Route: 048
     Dates: start: 19970804, end: 19980901
  5. RHEUMATREX [Suspect]
     Indication: RHEUMATOID ARTHRITIS
     Dosage: 2.5 MG, IN 1 WEEK, ORAL; SEE IMAGE
     Route: 048
     Dates: start: 19981001, end: 19990801
  6. RHEUMATREX [Suspect]
     Indication: RHEUMATOID ARTHRITIS
     Dosage: 2.5 MG, IN 1 WEEK, ORAL; SEE IMAGE
     Route: 048
     Dates: start: 19910801, end: 20021001
  7. RHEUMATREX [Suspect]
     Indication: RHEUMATOID ARTHRITIS
     Dosage: 2.5 MG, IN 1 WEEK, ORAL; SEE IMAGE
     Route: 048
     Dates: start: 20021001, end: 20031001
  8. RHEUMATREX [Suspect]
     Indication: RHEUMATOID ARTHRITIS
     Dosage: 2.5 MG, IN 1 WEEK, ORAL; SEE IMAGE
     Route: 048
     Dates: start: 20031001, end: 20031101
  9. RHEUMATREX [Suspect]
     Indication: RHEUMATOID ARTHRITIS
     Dosage: 2.5 MG, IN 1 WEEK, ORAL; SEE IMAGE
     Route: 048
     Dates: start: 20031101, end: 20040212
  10. MEDROL [Suspect]
     Indication: RHEUMATOID ARTHRITIS
     Dosage: 6 MG, IN 1 DAY, ORAL
     Route: 048
     Dates: start: 20001203, end: 20040213
  11. HYPEN (TABLETS) ETODOLAC [Concomitant]
  12. ONEALPHA (TABLETS) ALFACALCIDOL [Concomitant]
  13. CYTOTEC (TABLETS) MISOPROSTOL [Concomitant]
  14. OMEPRAZOLE [Concomitant]
  15. TINELAC (SENNOSIDE A+B) [Concomitant]
  16. METHYCOBAL (MECOBALAMIN) [Concomitant]
  17. WANARUFA (ALL OTHER THERAPEUTIC PRODUCTS) [Concomitant]
  18. OMEPRAZINE (ALL OTHER THERAPEUTIC PRODUCT) [Concomitant]
  19. CHINERAKKU (ALL OTHER THERAPEUTIC PRODUCTS) [Concomitant]
  20. BAKUTA (ALL OTHER THERAPEUTIC PRODUCTS) [Concomitant]
  21. BENIRON (PRISOCPHEN) [Concomitant]

REACTIONS (8)
  - BLOOD PRESSURE DECREASED [None]
  - BLOOD SODIUM DECREASED [None]
  - CARDIAC ARREST [None]
  - DRUG INTERACTION [None]
  - HYPERKALAEMIA [None]
  - PNEUMONIA CHLAMYDIAL [None]
  - PULMONARY MYCOSIS [None]
  - RESPIRATORY FAILURE [None]
